FAERS Safety Report 5721949-3 (Version None)
Quarter: 2008Q2

REPORT INFORMATION
  Report Type: 
  Country: None (occurrence: None)
  Receive Date: 20080429
  Receipt Date: 20080423
  Transmission Date: 20081010
  Serious: Yes (Disabling)
  Sender: FDA-Public Use
  Company Number: US-PFIZER INC-2008027827

PATIENT
  Sex: Male
  Weight: 83.9 kg

DRUGS (1)
  1. LIPITOR [Suspect]

REACTIONS (3)
  - ARTHRALGIA [None]
  - NEUROPATHY PERIPHERAL [None]
  - PAIN IN EXTREMITY [None]
